FAERS Safety Report 5289617-2 (Version None)
Quarter: 2007Q2

REPORT INFORMATION
  Report Type: 
  Country: None (occurrence: None)
  Receive Date: 20070406
  Receipt Date: 20070330
  Transmission Date: 20071010
  Serious: Yes (Other)
  Sender: FDA-Public Use
  Company Number: GBWYE276130MAR07

PATIENT
  Sex: Male

DRUGS (1)
  1. EFFEXOR [Suspect]
     Dosage: UNKNOWN
     Route: 048
     Dates: start: 20070201, end: 20070301

REACTIONS (4)
  - APATHY [None]
  - ASTHENIA [None]
  - FEELING ABNORMAL [None]
  - SOMNOLENCE [None]
